FAERS Safety Report 8960007 (Version 2)
Quarter: 2013Q1

REPORT INFORMATION
  Report Type: Spontaneous
  Country: DE (occurrence: DE)
  Receive Date: 20121212
  Receipt Date: 20130301
  Transmission Date: 20140127
  Serious: Yes (Hospitalization)
  Sender: FDA-Public Use
  Company Number: DE-AMGEN-DEUSP2012078323

PATIENT
  Age: 74 Year
  Sex: Female

DRUGS (2)
  1. ENBREL [Suspect]
     Indication: RHEUMATOID ARTHRITIS
     Dosage: 50 MG, WEEKLY
     Dates: start: 20120720
  2. PREDNISOLONE [Concomitant]
     Dosage: 5 MG, UNK

REACTIONS (3)
  - Carpal tunnel syndrome [Unknown]
  - Oral mucosal blistering [Not Recovered/Not Resolved]
  - Oedema mouth [Not Recovered/Not Resolved]
